FAERS Safety Report 10719151 (Version 2)
Quarter: 2015Q1

REPORT INFORMATION
  Report Type: Spontaneous
  Country: US (occurrence: US)
  Receive Date: 20150119
  Receipt Date: 20150119
  Transmission Date: 20150721
  Serious: No
  Sender: FDA-Public Use
  Company Number: US-UNITED THERAPEUTICS-UNT-2014-002925

PATIENT
  Age: 40 Year
  Sex: Female
  Weight: 68.48 kg

DRUGS (3)
  1. ADCIRCA [Concomitant]
     Active Substance: TADALAFIL
     Indication: PRODUCT USED FOR UNKNOWN INDICATION
     Route: 065
  2. REMODULIN [Suspect]
     Active Substance: TREPROSTINIL
     Indication: COR PULMONALE CHRONIC
     Dosage: 0.025 ?G/KG/MIN, CONTINUING
     Route: 058
     Dates: start: 20140414
  3. REMODULIN [Suspect]
     Active Substance: TREPROSTINIL
     Indication: COR PULMONALE CHRONIC
     Dosage: 0.007 ?G/KG/MIN, CONTINUING
     Route: 041
     Dates: start: 20140821

REACTIONS (19)
  - Abdominal distension [Unknown]
  - Device dislocation [Unknown]
  - Dyspnoea exertional [Unknown]
  - Pelvic pain [Unknown]
  - Diarrhoea [Unknown]
  - Infusion site oedema [Unknown]
  - Erythema [Unknown]
  - Skin irritation [Unknown]
  - Face oedema [Unknown]
  - Drug dose omission [Unknown]
  - Infusion site pain [Not Recovered/Not Resolved]
  - Oedema [Unknown]
  - Infusion site haemorrhage [Not Recovered/Not Resolved]
  - Axillary mass [Unknown]
  - Pain [Unknown]
  - Infusion site erythema [Unknown]
  - Breast oedema [Unknown]
  - Abdominal rigidity [Unknown]
  - Infusion site induration [Unknown]

NARRATIVE: CASE EVENT DATE: 2014
